FAERS Safety Report 5959842-3 (Version None)
Quarter: 2008Q4

REPORT INFORMATION
  Report Type: 
  Country: None (occurrence: None)
  Receive Date: 20081120
  Receipt Date: 20081113
  Transmission Date: 20090506
  Serious: Yes (Death)
  Sender: FDA-Public Use
  Company Number: B0544218A

PATIENT

DRUGS (3)
  1. ALKERAN [Suspect]
     Indication: TRANSPLANT
     Route: 042
  2. CARBOPLATIN [Suspect]
     Indication: TRANSPLANT
     Route: 042
  3. ETOPOSIDE [Suspect]
     Indication: TRANSPLANT
     Route: 065

REACTIONS (1)
  - SEPSIS [None]
